FAERS Safety Report 7961852-1 (Version None)
Quarter: 2011Q4

REPORT INFORMATION
  Report Type: 
  Country: None (occurrence: None)
  Receive Date: 20111207
  Receipt Date: 20111130
  Transmission Date: 20120403
  Serious: Yes (Other)
  Sender: FDA-Public Use
  Company Number: US-ABBOTT-11P-163-0870974-00

PATIENT
  Sex: Female

DRUGS (1)
  1. HUMIRA [Suspect]
     Indication: CROHN'S DISEASE
     Route: 058
     Dates: start: 20101115, end: 20111102

REACTIONS (6)
  - ARRHYTHMIA [None]
  - NERVOUSNESS [None]
  - DYSPNOEA [None]
  - AGITATION [None]
  - PALPITATIONS [None]
  - FEELING JITTERY [None]
